FAERS Safety Report 25250610 (Version 1)
Quarter: 2025Q2

REPORT INFORMATION
  Report Type: Spontaneous
  Country: US (occurrence: US)
  Receive Date: 20250429
  Receipt Date: 20250429
  Transmission Date: 20250716
  Serious: Yes (Life-Threatening, Hospitalization, Other)
  Sender: RISING PHARMACEUTICALS
  Company Number: US-RISINGPHARMA-US-2025RISLIT00196

PATIENT
  Age: 45 Year
  Sex: Male

DRUGS (2)
  1. BACLOFEN [Suspect]
     Active Substance: BACLOFEN
     Indication: Multiple sclerosis
     Route: 037
  2. BACLOFEN [Suspect]
     Active Substance: BACLOFEN
     Route: 048

REACTIONS (17)
  - Cardiac arrest [Recovered/Resolved]
  - Respiratory distress [Recovering/Resolving]
  - Electrocardiogram QT prolonged [Recovered/Resolved]
  - Ventricular tachycardia [Recovering/Resolving]
  - Confusional state [Recovering/Resolving]
  - Salivary hypersecretion [Recovering/Resolving]
  - Hyperhidrosis [Recovering/Resolving]
  - Hypertension [Recovering/Resolving]
  - Sinus tachycardia [Recovering/Resolving]
  - Tachypnoea [Recovering/Resolving]
  - Bradycardia [Recovering/Resolving]
  - Tachycardia [Recovering/Resolving]
  - Mental status changes [Recovering/Resolving]
  - Toxicity to various agents [Recovering/Resolving]
  - Rhonchi [Recovering/Resolving]
  - Respiratory acidosis [Recovering/Resolving]
  - Overdose [Unknown]
